FAERS Safety Report 10037498 (Version 1)
Quarter: 2014Q1

REPORT INFORMATION
  Report Type: Report from Study
  Country: US (occurrence: US)
  Receive Date: 20140326
  Receipt Date: 20140326
  Transmission Date: 20141002
  Serious: Yes (Other)
  Sender: FDA-Public Use
  Company Number: US-MYLANLABS-2014S1005991

PATIENT
  Age: 41 Year
  Sex: Male

DRUGS (2)
  1. MERCAPTOPURINE [Suspect]
     Indication: COLITIS ULCERATIVE
     Route: 065
  2. MERCAPTOPURINE [Suspect]
     Indication: OFF LABEL USE
     Route: 065

REACTIONS (1)
  - B-cell lymphoma [Unknown]
